FAERS Safety Report 18985641 (Version 2)
Quarter: 2021Q2

REPORT INFORMATION
  Report Type: Spontaneous
  Country: US (occurrence: US)
  Receive Date: 20210309
  Receipt Date: 20210405
  Transmission Date: 20210717
  Serious: Yes (Other)
  Sender: FDA-Public Use
  Company Number: US-PFIZER INC-2021229643

PATIENT
  Sex: Female

DRUGS (2)
  1. METOPROLOL. [Concomitant]
     Active Substance: METOPROLOL
     Dosage: UNK
  2. NIFEDIPINE. [Suspect]
     Active Substance: NIFEDIPINE
     Indication: HYPERTENSION
     Dosage: UNK

REACTIONS (12)
  - Peripheral swelling [Unknown]
  - Hypertension [Unknown]
  - Renal impairment [Unknown]
  - Muscular weakness [Recovering/Resolving]
  - Diarrhoea [Unknown]
  - Fatigue [Unknown]
  - Dyspnoea [Recovering/Resolving]
  - Loss of personal independence in daily activities [Unknown]
  - Intentional dose omission [Unknown]
  - Choking sensation [Unknown]
  - Gait disturbance [Unknown]
  - Renal disorder [Unknown]

NARRATIVE: CASE EVENT DATE: 202103
